FAERS Safety Report 11687090 (Version 2)
Quarter: 2015Q4

REPORT INFORMATION
  Report Type: Spontaneous
  Country: DE (occurrence: DE)
  Receive Date: 20151030
  Receipt Date: 20151210
  Transmission Date: 20160304
  Serious: No
  Sender: FDA-Public Use
  Company Number: PHHY2015DE140273

PATIENT
  Sex: Female
  Weight: 69 kg

DRUGS (1)
  1. FEMARA [Suspect]
     Active Substance: LETROZOLE
     Indication: BREAST CANCER
     Dosage: 2.5 MG, QD
     Route: 048
     Dates: start: 2015, end: 201505

REACTIONS (2)
  - Hyperplasia [Unknown]
  - Palpitations [Unknown]

NARRATIVE: CASE EVENT DATE: 20150625
